FAERS Safety Report 13806891 (Version 1)
Quarter: 2017Q3

REPORT INFORMATION
  Report Type: Report from Study
  Country: US (occurrence: US)
  Receive Date: 20170728
  Receipt Date: 20170728
  Transmission Date: 20171127
  Serious: No
  Sender: FDA-Public Use
  Company Number: US-AMGEN-USASL2017106833

PATIENT
  Sex: Female

DRUGS (1)
  1. REPATHA [Suspect]
     Active Substance: EVOLOCUMAB
     Indication: HYPERCHOLESTEROLAEMIA
     Dosage: 140 MG, Q2WK
     Route: 065
     Dates: start: 201705

REACTIONS (5)
  - Arthralgia [Unknown]
  - Rhinorrhoea [Recovered/Resolved]
  - Oropharyngeal pain [Recovered/Resolved]
  - Pruritus [Unknown]
  - Paraesthesia [Unknown]

NARRATIVE: CASE EVENT DATE: 2017
